FAERS Safety Report 9221581 (Version 1)
Quarter: 2013Q1

REPORT INFORMATION
  Report Type: Spontaneous
  Country: US (occurrence: None)
  Receive Date: 20120831
  Receipt Date: 20120831
  Transmission Date: 20140127
  Serious: No
  Sender: FDA-Public Use
  Company Number: 1000031441

PATIENT
  Age: 72 Year
  Sex: Female

DRUGS (7)
  1. DALIRESP [Suspect]
     Indication: CHRONIC OBSTRUCTIVE PULMONARY DISEASE
     Route: 048
     Dates: start: 20120615
  2. VITAMIN B-12 (CYANOCOBALAMIN)(INJECTION)(CYANOCOBALAMIN) [Concomitant]
  3. SYNTHROID(LEVOTHROXINE SODIUM)(LEVOTHROXINE SODIUM) [Concomitant]
  4. XANAX(ALPRAZOLAM)(ALPRAZOLAM) [Concomitant]
  5. MULTIVITAMINS(MULTIVITAMINS)(MULTIVITAMINS) [Concomitant]
  6. CITRACAL(CALCIUM CITRATE)(CALCIUM CITRATE) [Concomitant]
  7. VITAMIN D (VITAMIN D)(VITAMIN D) [Concomitant]

REACTIONS (2)
  - Pain in extremity [None]
  - Arthralgia [None]
